FAERS Safety Report 12571578 (Version 1)
Quarter: 2016Q3

REPORT INFORMATION
  Report Type: Spontaneous
  Country: US (occurrence: US)
  Receive Date: 20160719
  Receipt Date: 20160719
  Transmission Date: 20161109
  Serious: No
  Sender: FDA-Public Use
  Company Number: US-BAUSCH-BL-2015-028997

PATIENT
  Age: 53 Year
  Sex: Female

DRUGS (4)
  1. LIPITOR 10 MG [Concomitant]
     Indication: BLOOD CHOLESTEROL INCREASED
     Route: 048
  2. XIFAXAN [Suspect]
     Active Substance: RIFAXIMIN
     Indication: IRRITABLE BOWEL SYNDROME
     Route: 048
     Dates: start: 20141130, end: 2014
  3. LYRICA 25 MG [Concomitant]
     Indication: NERVOUS SYSTEM DISORDER
     Route: 048
  4. ELAVIL 12.5 MG [Concomitant]
     Indication: NERVOUS SYSTEM DISORDER
     Route: 048

REACTIONS (1)
  - Drug ineffective [Not Recovered/Not Resolved]

NARRATIVE: CASE EVENT DATE: 2014
